FAERS Safety Report 18493543 (Version 1)
Quarter: 2020Q4

REPORT INFORMATION
  Report Type: Report from Study
  Country: US (occurrence: US)
  Receive Date: 20201112
  Receipt Date: 20201112
  Transmission Date: 20210114
  Serious: Yes (Other)
  Sender: FDA-Public Use
  Company Number: US-TAKEDA-2020TUS047543

PATIENT
  Sex: Female

DRUGS (1)
  1. VEDOLIZUMAB [Suspect]
     Active Substance: VEDOLIZUMAB
     Indication: CROHN^S DISEASE
     Dosage: 300 MILLIGRAM
     Route: 042

REACTIONS (8)
  - Anorectal operation [Unknown]
  - Knee operation [Unknown]
  - Eczema [Unknown]
  - Hypersensitivity [Unknown]
  - Asthma [Unknown]
  - Shoulder operation [Unknown]
  - Limb operation [Unknown]
  - Upper respiratory tract infection [Unknown]
